FAERS Safety Report 4394532-2 (Version None)
Quarter: 2004Q3

REPORT INFORMATION
  Report Type: 
  Country: None (occurrence: None)
  Receive Date: 20040709
  Receipt Date: 20040709
  Transmission Date: 20050211
  Serious: Yes (Hospitalization)
  Sender: FDA-Public Use
  Company Number: None

PATIENT
  Age: 85 Year
  Sex: Female

DRUGS (2)
  1. BEXTRA [Suspect]
     Indication: ARTHRITIS
     Dosage: 10 MG DAY ORAL
     Route: 048
  2. ASPIRIN [Concomitant]

REACTIONS (2)
  - ASTHENIA [None]
  - FAECES DISCOLOURED [None]
